FAERS Safety Report 10230690 (Version 1)
Quarter: 2014Q2

REPORT INFORMATION
  Report Type: Spontaneous
  Country: US (occurrence: US)
  Receive Date: 20140611
  Receipt Date: 20140611
  Transmission Date: 20141212
  Serious: Yes (Other)
  Sender: FDA-Public Use
  Company Number: US-PFIZER INC-2014157531

PATIENT
  Age: 79 Year
  Sex: Female

DRUGS (1)
  1. FLECTOR [Suspect]
     Route: 062

REACTIONS (5)
  - Cerebrovascular accident [Unknown]
  - Paraesthesia [Unknown]
  - Malaise [Unknown]
  - Visual impairment [Unknown]
  - Dizziness [Unknown]
